FAERS Safety Report 11518207 (Version 2)
Quarter: 2015Q3

REPORT INFORMATION
  Report Type: Spontaneous
  Country: JP (occurrence: JP)
  Receive Date: 20150917
  Receipt Date: 20150921
  Transmission Date: 20151125
  Serious: Yes (Other)
  Sender: FDA-Public Use
  Company Number: JP-PFIZER INC-2015304026

PATIENT
  Age: 64 Year
  Sex: Male

DRUGS (8)
  1. GASLON [Concomitant]
     Active Substance: IRSOGLADINE MALEATE
     Indication: GASTRITIS PROPHYLAXIS
     Dosage: 4 MG, 1X/DAY
     Route: 048
     Dates: start: 201508
  2. NEUROTROPIN [Concomitant]
     Active Substance: NEUROTROPIN
     Indication: ANALGESIC THERAPY
     Dosage: 16 MG, 1X/DAY
     Route: 048
     Dates: start: 201508
  3. LYRICA [Suspect]
     Active Substance: PREGABALIN
     Dosage: 150 MG, 1X/DAY
     Route: 048
     Dates: start: 201508
  4. LYRICA [Suspect]
     Active Substance: PREGABALIN
     Indication: ANALGESIC THERAPY
     Dosage: 25 MG, 1X/DAY
     Route: 048
     Dates: start: 201508, end: 201508
  5. LYRICA [Suspect]
     Active Substance: PREGABALIN
     Dosage: 75 MG, 1X/DAY
     Route: 048
     Dates: start: 201508, end: 201508
  6. ONETRAM [Suspect]
     Active Substance: TRAMADOL HYDROCHLORIDE
     Indication: ANALGESIC THERAPY
     Dosage: 100 MG, 1X/DAY
     Route: 048
     Dates: start: 201508
  7. CELECOX [Concomitant]
     Active Substance: CELECOXIB
     Indication: ANALGESIC THERAPY
     Dosage: 200 MG, 1X/DAY
     Route: 048
     Dates: start: 201508
  8. MYONAL [Concomitant]
     Active Substance: EPERISONE HYDROCHLORIDE
     Indication: ANALGESIC THERAPY
     Dosage: 100 MG, 1X/DAY
     Dates: start: 201508

REACTIONS (3)
  - Road traffic accident [Recovered/Resolved]
  - Loss of consciousness [Recovered/Resolved]
  - Dizziness [Recovered/Resolved]

NARRATIVE: CASE EVENT DATE: 20150905
